FAERS Safety Report 8713455 (Version 3)
Quarter: 2013Q1

REPORT INFORMATION
  Report Type: Report from Study
  Country: US (occurrence: US)
  Receive Date: 20120808
  Receipt Date: 20130318
  Transmission Date: 20140127
  Serious: Yes (Hospitalization)
  Sender: FDA-Public Use
  Company Number: PHHO2012US011286

PATIENT
  Age: 78 Year
  Sex: Male
  Weight: 61.22 kg

DRUGS (15)
  1. SIMVASTATIN [Suspect]
     Dosage: 40 MG, QD
     Route: 048
     Dates: start: 20120413, end: 20120426
  2. ACZ885 [Suspect]
     Indication: CARDIOVASCULAR EVENT PROPHYLAXIS
     Dosage: 150 MG, UNK
     Route: 058
     Dates: start: 20120418
  3. ASA [Concomitant]
     Indication: PROPHYLAXIS
     Dosage: 81 MG, QD
     Route: 048
     Dates: start: 1995
  4. CARVEDILOL [Concomitant]
     Dosage: 12.5 MG, QD
     Route: 048
     Dates: start: 2009
  5. LEVOTHYROXINE [Concomitant]
     Dosage: 25 MG, QD
     Route: 048
     Dates: start: 2010, end: 20120412
  6. LEVOTHYROXINE [Concomitant]
     Dosage: 50 MG, QD
     Route: 048
     Dates: start: 20120413
  7. LISINOPRIL [Concomitant]
     Dosage: 5 MG, QD
     Route: 048
     Dates: start: 2010
  8. LOVASTATIN [Concomitant]
     Dosage: 20 MG, QD
     Route: 048
     Dates: start: 2001, end: 20120412
  9. PACERONE [Concomitant]
     Dosage: 200 MG, QD
     Route: 048
     Dates: start: 2003
  10. CENTRUM [Concomitant]
     Indication: SUPPLEMENTATION THERAPY
     Dosage: 1 DF, QD
     Route: 048
     Dates: start: 1992
  11. AMOXICILLIN [Concomitant]
     Dosage: 500 MG, TID
     Route: 048
     Dates: start: 20120525, end: 20120604
  12. FLUTICASONE PROPIONATE [Concomitant]
     Dosage: 50 MG, ONE SPRAY EACH NOSSTRIL
     Dates: start: 20120525
  13. ADVAIR [Concomitant]
     Dosage: 1 DF (250/50 MG), BID
     Dates: start: 20120619
  14. METFORMIN [Concomitant]
     Dosage: 500 MG, BID
     Route: 048
  15. MULTIVITAMINS [Concomitant]

REACTIONS (1)
  - Rhabdomyolysis [Recovered/Resolved]
